FAERS Safety Report 7400207-5 (Version None)
Quarter: 2011Q2

REPORT INFORMATION
  Report Type: 
  Country: None (occurrence: None)
  Receive Date: 20110407
  Receipt Date: 20110329
  Transmission Date: 20111010
  Serious: Yes (Other)
  Sender: FDA-Public Use
  Company Number: JP-ROCHE-769051

PATIENT
  Sex: Male

DRUGS (14)
  1. ACTEMRA [Suspect]
     Route: 041
     Dates: start: 20090402, end: 20090101
  2. METHOTREXATE [Suspect]
     Dosage: DOSAGE UNCERTAIN
     Route: 048
  3. PREDONINE [Concomitant]
     Route: 048
     Dates: start: 20090303
  4. SELBEX [Concomitant]
     Dosage: FORM: PERORAL AGENT
     Route: 048
  5. PREDONINE [Concomitant]
     Route: 048
     Dates: start: 20090108, end: 20090201
  6. ACTEMRA [Suspect]
     Route: 041
     Dates: start: 20091001
  7. PREDONINE [Concomitant]
     Route: 048
     Dates: end: 20081125
  8. SELBEX [Concomitant]
     Dosage: FORM:MINUTE GRAIN
     Route: 048
     Dates: end: 20080910
  9. SEMEN COICIS [Concomitant]
     Dosage: DRUG NAME: COIX SEED
     Route: 048
     Dates: end: 20090910
  10. PREDONINE [Concomitant]
     Route: 048
     Dates: start: 20090202, end: 20090302
  11. ACTEMRA [Suspect]
     Route: 041
     Dates: start: 20080813, end: 20090303
  12. PREDONINE [Concomitant]
     Route: 048
     Dates: start: 20081126, end: 20090107
  13. NAIXAN [Concomitant]
     Route: 048
  14. METHOTREXATE [Suspect]
     Dosage: ACTION TAKEN : DOSE DECREASED
     Route: 048
     Dates: end: 20090101

REACTIONS (1)
  - HEPATIC FUNCTION ABNORMAL [None]
